FAERS Safety Report 23750351 (Version 8)
Quarter: 2024Q3

REPORT INFORMATION
  Report Type: Report from Study
  Country: RU (occurrence: RU)
  Receive Date: 20240417
  Receipt Date: 20240920
  Transmission Date: 20241017
  Serious: Yes (Other)
  Sender: NOVARTIS
  Company Number: RU-002147023-NVSC2024RU078409

PATIENT
  Age: 2 Year
  Sex: Male
  Weight: 13.9 kg

DRUGS (4)
  1. ZOLGENSMA [Suspect]
     Active Substance: ONASEMNOGENE ABEPARVOVEC-XIOI
     Indication: Spinal muscular atrophy
     Dosage: 77 ML, ONCE/SINGLE
     Route: 041
     Dates: start: 20240329, end: 20240329
  2. CHOLECALCIFEROL [Concomitant]
     Active Substance: CHOLECALCIFEROL
     Indication: Product used for unknown indication
     Dosage: 1500 IU, QD (EVERY DAY)
     Route: 048
     Dates: start: 20240330
  3. PREDNISOLONE [Concomitant]
     Active Substance: PREDNISOLONE
     Indication: Product used for unknown indication
     Dosage: 15 MG, QD (3 TABLETS, EVERY DAY IN THE MORNING (1 MG/KG/DAY))
     Route: 048
     Dates: start: 20240330
  4. ESOMEPRAZOLE [Concomitant]
     Active Substance: ESOMEPRAZOLE
     Indication: Product used for unknown indication
     Dosage: 15 MG, QD (1/5 PACKET, AT NIGHT)
     Route: 065
     Dates: start: 20240330

REACTIONS (10)
  - Leukopenia [Recovering/Resolving]
  - Lethargy [Recovered/Resolved]
  - Lymphopenia [Recovering/Resolving]
  - Monocytosis [Recovering/Resolving]
  - Blood lactate dehydrogenase increased [Recovering/Resolving]
  - Vomiting [Recovered/Resolved]
  - Body temperature increased [Recovered/Resolved]
  - Alanine aminotransferase increased [Recovering/Resolving]
  - Aspartate aminotransferase increased [Recovering/Resolving]
  - Rhinorrhoea [Not Recovered/Not Resolved]

NARRATIVE: CASE EVENT DATE: 20240402
